FAERS Safety Report 6538243-3 (Version None)
Quarter: 2010Q1

REPORT INFORMATION
  Report Type: 
  Country: None (occurrence: None)
  Receive Date: 20100114
  Receipt Date: 20100112
  Transmission Date: 20100710
  Serious: Yes (Life-Threatening, Hospitalization)
  Sender: FDA-Public Use
  Company Number: US-ROCHE-475315

PATIENT
  Sex: Female
  Weight: 86.2 kg

DRUGS (17)
  1. TOCILIZUMAB [Suspect]
     Indication: RHEUMATOID ARTHRITIS
     Dosage: DOSAGE FORM: INFUSION.
     Route: 042
     Dates: start: 20060413, end: 20061206
  2. TOCILIZUMAB [Suspect]
     Dosage: DOSAGE FORM: INFUSION. DRUG WAS PERMANENTLY INTERRUPTED.
     Route: 042
     Dates: end: 20090604
  3. TOCILIZUMAB [Suspect]
     Dosage: THE PATIENT WAS PREVIOUSLY ENROLLED IN WA17824 AND WAS TAKING TOCILIZUMAB.
     Route: 042
  4. MELOXICAM [Concomitant]
     Dates: start: 20040420
  5. PREDNISONE [Concomitant]
     Dates: start: 20050714
  6. ACETAMINOPHEN [Concomitant]
     Dates: start: 19970101
  7. GLIMEPIRIDE [Concomitant]
     Dates: start: 20041201
  8. GLIMEPIRIDE [Concomitant]
     Dates: start: 20041201
  9. SIMVASTIN [Concomitant]
     Dates: start: 20041201
  10. 1 CONCOMITANT DRUG [Concomitant]
     Dosage: DRUG NAME: HYDROXYZINE EMBONATE
     Dates: start: 19970101
  11. ESTROGEN PATCH [Concomitant]
     Dates: start: 20020115
  12. CETRIZINE [Concomitant]
     Dosage: DRUG NAME: CETRIZINE HCL
     Dates: start: 20000101
  13. ROSIGLITAZONE MALEATE [Concomitant]
     Dates: start: 20041201
  14. ROSIGLITAZONE MALEATE [Concomitant]
     Dates: start: 20041201
  15. HYZAAR [Concomitant]
     Dates: start: 20041201
  16. BOSENTAN [Concomitant]
     Dosage: DRUG REPORTED AS ANHYDROUS BOSENTAX
     Dates: start: 20070831
  17. LOSARTAN [Concomitant]
     Dates: start: 20040101

REACTIONS (1)
  - INTERSTITIAL LUNG DISEASE [None]
